FAERS Safety Report 8462010 (Version 3)
Quarter: 2012Q4

REPORT INFORMATION
  Report Type: Report from Study
  Country: US (occurrence: US)
  Receive Date: 20120315
  Receipt Date: 20120913
  Transmission Date: 20130627
  Serious: Yes (Hospitalization, Congenital Anomaly)
  Sender: FDA-Public Use
  Company Number: US-ROCHE-GNE323486

PATIENT
  Age: 36 Day

DRUGS (1)
  1. OMALIZUMAB [Suspect]
     Indication: PRODUCT USED FOR UNKNOWN INDICATION
     Dosage: last dose prior to sae administered on 15 aug 2011.
     Route: 064
     Dates: start: 20100601

REACTIONS (2)
  - Tracheomalacia [Not Recovered/Not Resolved]
  - Bronchitis [Unknown]
